FAERS Safety Report 4742687-X (Version None)
Quarter: 2005Q3

REPORT INFORMATION
  Report Type: 
  Country: None (occurrence: None)
  Receive Date: 20050811
  Receipt Date: 20050521
  Transmission Date: 20060218
  Serious: Yes (Hospitalization)
  Sender: FDA-Public Use
  Company Number: FR-JNJFOC-20050801781

PATIENT
  Age: 15 Year
  Sex: Male

DRUGS (1)
  1. IXPRIM [Suspect]
     Dosage: 1 TABLET PER DAY
     Route: 048

REACTIONS (4)
  - HYPOTONIA [None]
  - LOSS OF CONSCIOUSNESS [None]
  - SOMNOLENCE [None]
  - TREMOR [None]
